FAERS Safety Report 6273862-3 (Version None)
Quarter: 2009Q3

REPORT INFORMATION
  Report Type: 
  Country: None (occurrence: None)
  Receive Date: 20090720
  Receipt Date: 20090709
  Transmission Date: 20100115
  Serious: Yes (Hospitalization, Other)
  Sender: FDA-Public Use
  Company Number: US-GILEAD-2009-0023028

PATIENT
  Sex: Male

DRUGS (3)
  1. TRUVADA [Suspect]
     Indication: HIV INFECTION
     Dates: end: 20090602
  2. KALETRA [Suspect]
     Indication: HIV INFECTION
     Dates: end: 20090602
  3. DAPSONE [Concomitant]
     Indication: OPPORTUNISTIC INFECTION

REACTIONS (4)
  - ANAEMIA [None]
  - BODY TEMPERATURE DECREASED [None]
  - HYPOVENTILATION [None]
  - RENAL FAILURE [None]
